FAERS Safety Report 23444767 (Version 2)
Quarter: 2024Q1

REPORT INFORMATION
  Report Type: Spontaneous
  Country: JP (occurrence: JP)
  Receive Date: 20240125
  Receipt Date: 20240227
  Transmission Date: 20240410
  Serious: Yes (Hospitalization)
  Sender: FDA-Public Use
  Company Number: JP-NShinyaku-EVA202306763ZZLILLY

PATIENT
  Age: 35 Year
  Sex: Female
  Weight: 45 kg

DRUGS (13)
  1. TADALAFIL [Suspect]
     Active Substance: TADALAFIL
     Indication: Pulmonary arterial hypertension
     Dosage: 40 MG, DAILY
     Route: 048
     Dates: start: 20190926
  2. OPSUMIT [Concomitant]
     Active Substance: MACITENTAN
     Indication: Pulmonary arterial hypertension
     Dosage: 10 MG, DAILY
     Route: 048
     Dates: start: 20190926
  3. EPOPROSTENOL SODIUM [Concomitant]
     Active Substance: EPOPROSTENOL SODIUM
     Indication: Pulmonary arterial hypertension
     Dosage: UNK UNK, UNKNOWN
     Route: 042
     Dates: start: 20190926
  4. EPOPROSTENOL SODIUM [Concomitant]
     Active Substance: EPOPROSTENOL SODIUM
     Dosage: 49.6 NG/KG/MIN, UNKNOWN
     Route: 042
  5. EPOPROSTENOL SODIUM [Concomitant]
     Active Substance: EPOPROSTENOL SODIUM
     Dosage: 50 NG/KG/MIN, UNKNOWN
     Route: 042
     Dates: start: 2022
  6. EPOPROSTENOL SODIUM [Concomitant]
     Active Substance: EPOPROSTENOL SODIUM
     Dosage: UNK UNK (GRADUALLY REDUCED), UNKNOWN
     Route: 042
     Dates: start: 2022
  7. TREPROSTINIL [Concomitant]
     Active Substance: TREPROSTINIL
     Indication: Pulmonary arterial hypertension
     Dosage: 41 NG/KG/MIN, UNKNOWN
     Route: 065
     Dates: start: 20190926
  8. AZOSEMIDE [Concomitant]
     Active Substance: AZOSEMIDE
     Indication: Product used for unknown indication
     Dosage: 60 MG, DAILY
     Route: 048
  9. TOLVAPTAN [Concomitant]
     Active Substance: TOLVAPTAN
     Indication: Product used for unknown indication
     Dosage: 15 MG, DAILY
     Route: 048
  10. SPIRONOLACTONE [Concomitant]
     Active Substance: SPIRONOLACTONE
     Indication: Product used for unknown indication
     Dosage: 25 MG, DAILY
     Route: 048
  11. TRICHLORMETHIAZIDE [Concomitant]
     Active Substance: TRICHLORMETHIAZIDE
     Indication: Product used for unknown indication
     Dosage: 1 MG, DAILY
     Route: 048
  12. POTASSIUM CHLORIDE [Concomitant]
     Active Substance: POTASSIUM CHLORIDE
     Indication: Product used for unknown indication
     Dosage: 1800 MG, DAILY
     Route: 048
  13. CORTRIL [Concomitant]
     Active Substance: HYDROCORTISONE
     Indication: Product used for unknown indication
     Dosage: 15 MG, DAILY
     Route: 048

REACTIONS (20)
  - Pyrexia [Recovering/Resolving]
  - Pyrexia [Recovering/Resolving]
  - Adrenal insufficiency [Recovered/Resolved]
  - Hypopituitarism [Not Recovered/Not Resolved]
  - Pancytopenia [Recovering/Resolving]
  - Decreased appetite [Not Recovered/Not Resolved]
  - Arthralgia [Not Recovered/Not Resolved]
  - Nausea [Not Recovered/Not Resolved]
  - Myalgia [Not Recovered/Not Resolved]
  - Renal impairment [Recovering/Resolving]
  - Haemoconcentration [Recovering/Resolving]
  - Hyponatraemia [Recovering/Resolving]
  - Feeling abnormal [Recovering/Resolving]
  - Catheter site infection [Recovering/Resolving]
  - Viral infection [Recovering/Resolving]
  - Vomiting [Unknown]
  - Hypotension [Unknown]
  - Malaise [Recovering/Resolving]
  - Headache [Unknown]
  - Nausea [Unknown]

NARRATIVE: CASE EVENT DATE: 20191001
